FAERS Safety Report 24690121 (Version 1)
Quarter: 2024Q4

REPORT INFORMATION
  Report Type: Spontaneous
  Country: US (occurrence: US)
  Receive Date: 20241203
  Receipt Date: 20241203
  Transmission Date: 20250115
  Serious: Yes (Hospitalization, Other)
  Sender: APOTEX
  Company Number: US-APOTEX-2024AP019073

PATIENT
  Age: 60 Year
  Sex: Male

DRUGS (2)
  1. METFORMIN [Suspect]
     Active Substance: METFORMIN HYDROCHLORIDE
     Indication: Product used for unknown indication
     Dosage: 500 MILLIGRAM, BID
     Route: 065
  2. EMPAGLIFLOZIN [Suspect]
     Active Substance: EMPAGLIFLOZIN
     Indication: Product used for unknown indication
     Dosage: 10 MILLIGRAM, QD
     Route: 065

REACTIONS (9)
  - Euglycaemic diabetic ketoacidosis [Unknown]
  - Acute kidney injury [Recovering/Resolving]
  - Toxicity to various agents [Unknown]
  - Metabolic acidosis [Unknown]
  - Mental status changes [Unknown]
  - Hypophagia [Unknown]
  - Lactic acidosis [Recovered/Resolved]
  - Abdominal pain [Unknown]
  - Vomiting [Unknown]
